FAERS Safety Report 23272616 (Version 1)
Quarter: 2023Q4

REPORT INFORMATION
  Report Type: Report from Study
  Country: US (occurrence: US)
  Receive Date: 20231207
  Receipt Date: 20231207
  Transmission Date: 20240109
  Serious: Yes (Hospitalization, Other)
  Sender: FDA-Public Use
  Company Number: US-SEATTLE GENETICS-2023SGN11585

PATIENT
  Sex: Female

DRUGS (22)
  1. TUCATINIB [Suspect]
     Active Substance: TUCATINIB
     Indication: Breast cancer stage IV
     Dosage: 300 MG, BID
     Route: 048
     Dates: end: 20231108
  2. TUCATINIB [Suspect]
     Active Substance: TUCATINIB
     Indication: Metastases to central nervous system
  3. CAPECITABINE [Suspect]
     Active Substance: CAPECITABINE
     Indication: Breast cancer stage IV
     Dosage: 1000 MG, QD
     Route: 048
  4. CAPECITABINE [Suspect]
     Active Substance: CAPECITABINE
     Indication: Metastases to central nervous system
     Dosage: 1500 MG, QPM FOR 7 DAYS ON AND 7 DAYS OFF
     Route: 048
  5. TRASTUZUMAB [Suspect]
     Active Substance: TRASTUZUMAB
     Indication: Breast cancer stage IV
     Route: 065
  6. TRASTUZUMAB [Suspect]
     Active Substance: TRASTUZUMAB
     Indication: Metastases to central nervous system
  7. LOPERAMIDE [Suspect]
     Active Substance: LOPERAMIDE
     Indication: Diarrhoea
     Route: 065
  8. KETOCONAZOLE [Concomitant]
     Active Substance: KETOCONAZOLE
     Dosage: UNK UNK, QD
     Route: 061
  9. FLUOXETINE [Concomitant]
     Active Substance: FLUOXETINE HYDROCHLORIDE
     Dosage: 80 MG, QD
     Route: 048
  10. OLANZAPINE [Concomitant]
     Active Substance: OLANZAPINE
     Dosage: 5 MG, QD
     Route: 048
  11. ATIVAN [Concomitant]
     Active Substance: LORAZEPAM
     Indication: Sleep disorder
     Dosage: 2 MG, QHS
     Route: 048
  12. ATIVAN [Concomitant]
     Active Substance: LORAZEPAM
     Indication: Major depression
  13. RITALIN [Concomitant]
     Active Substance: METHYLPHENIDATE HYDROCHLORIDE
     Indication: Major depression
     Dosage: 5 MG, QAM
     Route: 048
  14. RITALIN [Concomitant]
     Active Substance: METHYLPHENIDATE HYDROCHLORIDE
     Dosage: 5 MG, QPM
     Route: 048
  15. MONTELUKAST [Concomitant]
     Active Substance: MONTELUKAST SODIUM
     Dosage: 10 MG, QD
     Route: 048
  16. VITAMIN D3 [Concomitant]
     Active Substance: CHOLECALCIFEROL
     Dosage: 1000 IU, QD
     Route: 048
  17. TYLENOL EXTRA STRENGTH [Concomitant]
     Active Substance: ACETAMINOPHEN
     Dosage: 1000 MG, Q6HR
     Route: 048
  18. FERROUS SULFATE [Concomitant]
     Active Substance: FERROUS SULFATE
     Dosage: 25 MG, QD
     Route: 048
  19. METHENAMINE HIPPURATE [Concomitant]
     Active Substance: METHENAMINE HIPPURATE
     Dosage: 1 G, BID
     Route: 048
  20. ESOMEPRAZOLE [Concomitant]
     Active Substance: ESOMEPRAZOLE
     Dosage: 20 MG, QD
     Route: 048
  21. COLACE [Concomitant]
     Active Substance: DOCUSATE SODIUM
     Dosage: 100 MG, BID
     Route: 048
  22. LOSARTAN [Concomitant]
     Active Substance: LOSARTAN
     Dosage: 100 MG, QD
     Route: 048

REACTIONS (14)
  - Thrombocytopenia [Unknown]
  - Nephrolithiasis [Unknown]
  - Cellulitis [Recovered/Resolved]
  - Malignant neoplasm progression [Unknown]
  - Lymphoedema [Unknown]
  - Asthenia [Unknown]
  - Pain [Unknown]
  - Skin lesion [Not Recovered/Not Resolved]
  - Upper-airway cough syndrome [Unknown]
  - Hypertonic bladder [Unknown]
  - Back pain [Unknown]
  - Drug ineffective [Unknown]
  - Nausea [Unknown]
  - Diarrhoea [Unknown]
